FAERS Safety Report 4707959-3 (Version None)
Quarter: 2005Q3

REPORT INFORMATION
  Report Type: 
  Country: None (occurrence: None)
  Receive Date: 20050707
  Receipt Date: 20050329
  Transmission Date: 20060218
  Serious: Yes (Death)
  Sender: FDA-Public Use
  Company Number: US-ABBOTT-05P-163-0295412-00

PATIENT
  Sex: Male

DRUGS (7)
  1. RITONAVIR SOFT GELATIN CAPSULES [Suspect]
     Indication: HIV INFECTION
     Route: 048
     Dates: start: 20030729, end: 20050318
  2. TIPRANAVIR [Concomitant]
     Indication: HIV INFECTION
     Route: 048
     Dates: start: 20040128, end: 20050318
  3. TENOFOVIR [Concomitant]
     Indication: HIV INFECTION
     Route: 048
     Dates: start: 20030721, end: 20050318
  4. LAMIVUDINE [Concomitant]
     Indication: HIV INFECTION
     Route: 048
     Dates: start: 20030721, end: 20050318
  5. ENFUVIRTIDE [Concomitant]
     Indication: HIV INFECTION
     Route: 058
     Dates: start: 20030722, end: 20050318
  6. CIPROFLOXACIN [Concomitant]
     Indication: DRUG USE FOR UNKNOWN INDICATION
     Dates: start: 20050309, end: 20050318
  7. TRIAMCINOLONE [Concomitant]
     Indication: DRUG USE FOR UNKNOWN INDICATION
     Dosage: 0.8%
     Dates: start: 20050309, end: 20050318

REACTIONS (6)
  - CARDIOMEGALY [None]
  - CORONARY ARTERY DISEASE [None]
  - INFECTION [None]
  - LIVER ABSCESS [None]
  - NORMAL PRESSURE HYDROCEPHALUS [None]
  - SPLENIC ABSCESS [None]
